FAERS Safety Report 18431140 (Version 1)
Quarter: 2020Q4

REPORT INFORMATION
  Report Type: Spontaneous
  Country: US (occurrence: US)
  Receive Date: 20201027
  Receipt Date: 20201027
  Transmission Date: 20210114
  Serious: Yes (Hospitalization)
  Sender: FDA-Public Use
  Company Number: None

PATIENT
  Age: 74 Year
  Sex: Female

DRUGS (14)
  1. TROKENDI XR [Concomitant]
     Active Substance: TOPIRAMATE
  2. AZITHROMYCIN ANHYDROUS. [Concomitant]
     Active Substance: AZITHROMYCIN ANHYDROUS
  3. GABAPENTIN. [Concomitant]
     Active Substance: GABAPENTIN
  4. NYSTATIN. [Concomitant]
     Active Substance: NYSTATIN
  5. FORTEO [Suspect]
     Active Substance: TERIPARATIDE
     Indication: OESOPHAGEAL DISORDER
     Route: 058
     Dates: start: 20190228
  6. OXYCODONE [Concomitant]
     Active Substance: OXYCODONE
  7. DULOXETINE. [Concomitant]
     Active Substance: DULOXETINE
  8. ALBUTEROL AER HFR [Concomitant]
  9. CYANOCOBALAM [Concomitant]
     Active Substance: CYANOCOBALAMIN
  10. TIZANIDINE. [Concomitant]
     Active Substance: TIZANIDINE
  11. VALACYCLOVIR [Concomitant]
     Active Substance: VALACYCLOVIR HYDROCHLORIDE
  12. ALPRAZOLAM. [Concomitant]
     Active Substance: ALPRAZOLAM
  13. FLUTICASONE. [Concomitant]
     Active Substance: FLUTICASONE
  14. ZOLPIDEM [Concomitant]
     Active Substance: ZOLPIDEM TARTRATE

REACTIONS (1)
  - COVID-19 [None]
